FAERS Safety Report 7939228-2 (Version None)
Quarter: 2011Q4

REPORT INFORMATION
  Report Type: 
  Country: None (occurrence: None)
  Receive Date: 20111124
  Receipt Date: 20111121
  Transmission Date: 20120403
  Serious: Yes (Hospitalization)
  Sender: FDA-Public Use
  Company Number: SI-AMGEN-SVNCT2011061162

PATIENT
  Age: 75 Year
  Sex: Female

DRUGS (7)
  1. CINACALCET HYDROCHLORIDE [Suspect]
     Indication: HYPERPARATHYROIDISM SECONDARY
     Dosage: 30 MG, QD
     Route: 048
     Dates: start: 20110624
  2. CALCII CARBONAS [Concomitant]
     Dosage: 1 G, UNK
     Route: 048
  3. AMLODIPINE BESYLATE [Concomitant]
     Dosage: 5 MG, QD
     Route: 048
  4. RENVELA [Concomitant]
     Dosage: 400 MG, UNK
     Route: 048
  5. TONOCARDIN [Concomitant]
     Dosage: 2 MG, UNK
     Route: 048
  6. ARANESP [Concomitant]
     Dosage: 20 MUG, QWK
  7. VASILIP [Concomitant]
     Dosage: 10 MG, QD
     Route: 048

REACTIONS (1)
  - RENAL TRANSPLANT [None]
